FAERS Safety Report 5723603-0 (Version None)
Quarter: 2008Q2

REPORT INFORMATION
  Report Type: 
  Country: None (occurrence: None)
  Receive Date: 20080430
  Receipt Date: 20080425
  Transmission Date: 20081010
  Serious: Yes (Other)
  Sender: FDA-Public Use
  Company Number: JP-BRISTOL-MYERS SQUIBB COMPANY-14166565

PATIENT
  Age: 63 Year
  Sex: Female

DRUGS (8)
  1. TAXOL [Suspect]
     Indication: UTERINE CANCER
     Route: 041
     Dates: start: 20070605, end: 20071030
  2. PARAPLATIN [Suspect]
     Indication: UTERINE CANCER
     Dosage: 400MG 04JUL07 TO 05SEP07 4 DAYS; 380MG 03OCT07 TO 03OCT07 1 DAY; 400MG 30OCT07 TO 30OCT07 1 DAY.
     Route: 041
     Dates: start: 20070605, end: 20070605
  3. NEU-UP [Concomitant]
     Route: 058
     Dates: start: 20070621, end: 20071019
  4. ZOFRAN [Concomitant]
     Route: 048
     Dates: start: 20070605, end: 20071110
  5. SEROTONE [Concomitant]
     Route: 065
     Dates: start: 20070605, end: 20071110
  6. MARZULENE-S [Concomitant]
     Route: 048
     Dates: start: 20070605, end: 20071130
  7. GOSHAJINKIGAN [Concomitant]
     Route: 048
     Dates: start: 20070605, end: 20071130
  8. MOBIC [Concomitant]
     Route: 048
     Dates: start: 20070605, end: 20071130

REACTIONS (1)
  - GASTRIC ULCER [None]
